FAERS Safety Report 4325336-4 (Version None)
Quarter: 2004Q1

REPORT INFORMATION
  Report Type: 
  Country: None (occurrence: None)
  Receive Date: 20040323
  Receipt Date: 20040311
  Transmission Date: 20041129
  Serious: Yes (Death)
  Sender: FDA-Public Use
  Company Number: 2004-DE-01209GD

PATIENT
  Age: 35 Year
  Sex: Male

DRUGS (1)
  1. PREDNISONE [Suspect]
     Indication: VASCULITIS

REACTIONS (2)
  - ORGAN TRANSPLANT [None]
  - VASCULITIS [None]
